FAERS Safety Report 20595491 (Version 2)
Quarter: 2022Q1

REPORT INFORMATION
  Report Type: Spontaneous
  Country: AU (occurrence: AU)
  Receive Date: 20220315
  Receipt Date: 20220324
  Transmission Date: 20220423
  Serious: Yes (Other)
  Sender: FDA-Public Use
  Company Number: AU-Accord-257119

PATIENT
  Age: 5 Year
  Sex: Male

DRUGS (1)
  1. MONTELUKAST SODIUM [Suspect]
     Active Substance: MONTELUKAST SODIUM
     Indication: Asthma

REACTIONS (8)
  - Withdrawal syndrome [Not Recovered/Not Resolved]
  - Agitation [Recovering/Resolving]
  - Anxiety [Recovering/Resolving]
  - Obsessive thoughts [Recovering/Resolving]
  - Nightmare [Not Recovered/Not Resolved]
  - Panic attack [Recovering/Resolving]
  - Hallucination, auditory [Recovering/Resolving]
  - Formication [Recovering/Resolving]
